FAERS Safety Report 17692105 (Version 2)
Quarter: 2020Q2

REPORT INFORMATION
  Report Type: Spontaneous
  Country: US (occurrence: US)
  Receive Date: 20200422
  Receipt Date: 20200424
  Transmission Date: 20200714
  Serious: No
  Sender: FDA-Public Use
  Company Number: US-PFIZER INC-2020155149

PATIENT
  Age: 84 Year
  Sex: Male
  Weight: 77.11 kg

DRUGS (2)
  1. COMBIGAN [Concomitant]
     Active Substance: BRIMONIDINE TARTRATE\TIMOLOL MALEATE
     Dosage: ONE DROP EACH EYE TWICE DAILY
  2. LATANOPROST. [Suspect]
     Active Substance: LATANOPROST
     Indication: OCULAR HYPERTENSION
     Dosage: 1 DROP, 1X/DAY (ONE DROP IN THE LEFT EYE EVERY NIGHT)
     Route: 047
     Dates: start: 202003

REACTIONS (2)
  - Eyelid irritation [Recovering/Resolving]
  - Eye pruritus [Unknown]

NARRATIVE: CASE EVENT DATE: 2020
